FAERS Safety Report 4853471-0 (Version None)
Quarter: 2005Q4

REPORT INFORMATION
  Report Type: 
  Country: None (occurrence: None)
  Receive Date: 20051130
  Receipt Date: 20051007
  Transmission Date: 20060501
  Serious: No
  Sender: FDA-Public Use
  Company Number: WAES 0510USA04889

PATIENT
  Sex: Female

DRUGS (4)
  1. ZETIA [Suspect]
     Indication: BLOOD CHOLESTEROL INCREASED
     Dosage: 10 MG/DAILY/PO
     Route: 048
     Dates: start: 20050801, end: 20050801
  2. COZAAR [Concomitant]
  3. FOSAMAX [Concomitant]
  4. VERELAN [Concomitant]

REACTIONS (1)
  - FAECAL INCONTINENCE [None]
